FAERS Safety Report 10789900 (Version 1)
Quarter: 2015Q1

REPORT INFORMATION
  Report Type: Spontaneous
  Country: CN (occurrence: CN)
  Receive Date: 20150212
  Receipt Date: 20150212
  Transmission Date: 20150721
  Serious: Yes (Other)
  Sender: FDA-Public Use
  Company Number: CN-PFIZER INC-2015053875

PATIENT
  Age: 6 Year
  Sex: Male

DRUGS (1)
  1. TIGECYCLINE [Suspect]
     Active Substance: TIGECYCLINE
     Indication: LUNG INFECTION
     Dosage: 25 MG, DAILY

REACTIONS (3)
  - Nephrolithiasis [Unknown]
  - Hyponatraemia [Recovering/Resolving]
  - Product use issue [Unknown]
